FAERS Safety Report 10049804 (Version 2)
Quarter: 2014Q2

REPORT INFORMATION
  Report Type: Report from Study
  Country: DE (occurrence: DE)
  Receive Date: 20140401
  Receipt Date: 20140509
  Transmission Date: 20141212
  Serious: No
  Sender: FDA-Public Use
  Company Number: DE-BEH-2014041466

PATIENT
  Age: 30 Year
  Sex: Female
  Weight: 66 kg

DRUGS (2)
  1. PRIVIGEN [Suspect]
     Indication: ABORTION
     Dosage: INFUISON RATE: MIN. 1,7 ML /MIN, INFUSION RATE MAX. 5.0 ML /MIN
     Dates: start: 20100830, end: 20100830
  2. CLEXANE 40 [Concomitant]

REACTIONS (1)
  - Exposure during pregnancy [Unknown]
